FAERS Safety Report 8462519-6 (Version None)
Quarter: 2012Q2

REPORT INFORMATION
  Report Type: 
  Country: None (occurrence: None)
  Receive Date: 20120625
  Receipt Date: 20120621
  Transmission Date: 20120825
  Serious: Yes (Other)
  Sender: FDA-Public Use
  Company Number: CZ-TEVA-343725ISR

PATIENT
  Age: 42 Year
  Sex: Female

DRUGS (3)
  1. DOXORUBICIN HCL [Concomitant]
     Indication: BREAST CANCER
  2. PACLITAXEL [Suspect]
     Indication: BREAST CANCER
     Route: 041
  3. CYCLOPHOSPHAMIDE [Concomitant]
     Indication: BREAST CANCER

REACTIONS (1)
  - HALLUCINATION [None]
